FAERS Safety Report 22268225 (Version 1)
Quarter: 2023Q2

REPORT INFORMATION
  Report Type: Spontaneous
  Country: CN (occurrence: None)
  Receive Date: 20230430
  Receipt Date: 20230430
  Transmission Date: 20230722
  Serious: Yes (Other)
  Sender: FDA-Public Use
  Company Number: CN-ROCHE-3340574

PATIENT
  Age: 56 Year
  Sex: Female

DRUGS (4)
  1. HERCEPTIN [Suspect]
     Active Substance: TRASTUZUMAB
     Indication: Invasive ductal breast carcinoma
     Dosage: FORM OF ADMIN TEXT : INJECTION
     Route: 041
     Dates: start: 20230407, end: 20230407
  2. PACLITAXEL [Suspect]
     Active Substance: PACLITAXEL
     Indication: Invasive ductal breast carcinoma
     Dosage: DF=VIAL
     Route: 041
     Dates: start: 20230407, end: 20230407
  3. SODIUM CHLORIDE [Concomitant]
     Active Substance: SODIUM CHLORIDE
     Dosage: DF=VIAL
     Route: 041
     Dates: start: 20230407, end: 20230407
  4. DEXTROSE [Concomitant]
     Active Substance: DEXTROSE\DEXTROSE MONOHYDRATE
     Dosage: DF=VIAL
     Route: 041
     Dates: start: 20230407, end: 20230407

REACTIONS (2)
  - White blood cell count decreased [Recovered/Resolved]
  - Myelosuppression [Recovering/Resolving]

NARRATIVE: CASE EVENT DATE: 20230412
